FAERS Safety Report 18009019 (Version 1)
Quarter: 2020Q3

REPORT INFORMATION
  Report Type: Spontaneous
  Country: US (occurrence: US)
  Receive Date: 20200710
  Receipt Date: 20200710
  Transmission Date: 20201103
  Serious: Yes (Hospitalization, Other)
  Sender: FDA-Public Use
  Company Number: US-SAOL THERAPEUTICS-2019SAO00313

PATIENT
  Age: 22 Year
  Sex: Male
  Weight: 68.03 kg

DRUGS (8)
  1. LIORESAL [Suspect]
     Active Substance: BACLOFEN
     Indication: MUSCLE SPASTICITY
     Dosage: 600 ?G, \DAY
     Route: 037
     Dates: end: 2019
  2. LIORESAL [Suspect]
     Active Substance: BACLOFEN
     Dosage: 1102 ?G, 1X/DAY
     Route: 037
     Dates: start: 201907, end: 20190729
  3. LIORESAL [Suspect]
     Active Substance: BACLOFEN
     Dosage: 1173 ?G, 1X/DAY (ALSO REPORTED AS 1170 ?G/DAY)
     Route: 037
     Dates: start: 20190729
  4. LIORESAL [Suspect]
     Active Substance: BACLOFEN
     Dosage: UNK; ^DOSE WAS BEING WEANED DOWN^
     Route: 037
  5. LIORESAL [Suspect]
     Active Substance: BACLOFEN
     Dosage: 900 ?G, \DAY
     Route: 037
     Dates: end: 20190810
  6. LIORESAL [Suspect]
     Active Substance: BACLOFEN
     Dosage: 950 ?G, 1X/DAY
     Route: 037
     Dates: start: 2019, end: 201907
  7. LIORESAL [Suspect]
     Active Substance: BACLOFEN
     Dosage: DOSE DECREASED ANOTHER 20%
     Route: 037
     Dates: start: 20190810, end: 20190810
  8. LIORESAL [Suspect]
     Active Substance: BACLOFEN
     Dosage: 750.7 ?G, \DAY
     Route: 037
     Dates: start: 20190810

REACTIONS (6)
  - Device issue [Recovered/Resolved]
  - Drug withdrawal syndrome [Recovered/Resolved]
  - Depressed level of consciousness [Recovered/Resolved]
  - Vomiting [Recovered/Resolved]
  - Overdose [Recovered/Resolved]
  - Unresponsive to stimuli [Recovered/Resolved]

NARRATIVE: CASE EVENT DATE: 2019
